FAERS Safety Report 25138584 (Version 1)
Quarter: 2025Q1

REPORT INFORMATION
  Report Type: Report from Study
  Country: MA (occurrence: MA)
  Receive Date: 20250330
  Receipt Date: 20250330
  Transmission Date: 20250409
  Serious: Yes (Other)
  Sender: NOVARTIS
  Company Number: MA-002147023-NVSC2025MA042224

PATIENT
  Age: 55 Year
  Sex: Female

DRUGS (2)
  1. KISQALI [Suspect]
     Active Substance: RIBOCICLIB
     Indication: Breast cancer
     Route: 048
  2. KISQALI [Suspect]
     Active Substance: RIBOCICLIB
     Dosage: 3 DOSAGE FORM, QD (TABLET) (FOR 21 DAYS)
     Route: 065

REACTIONS (3)
  - Decreased immune responsiveness [Unknown]
  - Pyrexia [Unknown]
  - Bone disorder [Unknown]

NARRATIVE: CASE EVENT DATE: 20250303
